FAERS Safety Report 9424484 (Version 2)
Quarter: 2013Q3

REPORT INFORMATION
  Report Type: Spontaneous
  Country: JP (occurrence: JP)
  Receive Date: 20130729
  Receipt Date: 20130801
  Transmission Date: 20140515
  Serious: Yes (Death)
  Sender: FDA-Public Use
  Company Number: JP-ROCHE-1254205

PATIENT
  Age: 79 Year
  Sex: Female
  Weight: 40.04 kg

DRUGS (4)
  1. XOLAIR [Suspect]
     Indication: ASTHMA
     Route: 058
     Dates: start: 20110408
  2. SYMBICORT [Concomitant]
     Route: 065
     Dates: start: 20100729
  3. SINGULAIR [Concomitant]
     Route: 065
     Dates: start: 20100506, end: 20110207
  4. THEODUR [Concomitant]
     Route: 065
     Dates: start: 20110208

REACTIONS (1)
  - Asthma [Fatal]
